FAERS Safety Report 4469158-2 (Version None)
Quarter: 2004Q4

REPORT INFORMATION
  Report Type: 
  Country: None (occurrence: None)
  Receive Date: 20041005
  Receipt Date: 20041005
  Transmission Date: 20050328
  Serious: No
  Sender: FDA-Public Use
  Company Number: None

PATIENT
  Age: 49 Year
  Sex: Male
  Weight: 85.7298 kg

DRUGS (7)
  1. VIREAD [Suspect]
     Indication: BLOOD POTASSIUM INCREASED
     Dosage: 300MG PO QD
     Route: 048
     Dates: start: 20031230, end: 20040901
  2. INVIREASE [Concomitant]
  3. NORVIR [Concomitant]
  4. 3TC [Concomitant]
  5. ABC [Concomitant]
  6. SEROQUEL [Concomitant]
  7. KCL TAB [Concomitant]

REACTIONS (2)
  - BLOOD CREATININE INCREASED [None]
  - HYPOKALAEMIA [None]
